FAERS Safety Report 26208964 (Version 1)
Quarter: 2025Q4

REPORT INFORMATION
  Report Type: Spontaneous
  Country: US (occurrence: None)
  Receive Date: 20251226
  Receipt Date: 20251226
  Transmission Date: 20260118
  Serious: No
  Sender: FDA-CTU
  Company Number: None

PATIENT
  Age: 57 Year
  Sex: Female

DRUGS (2)
  1. DUPIXENT [Suspect]
     Active Substance: DUPILUMAB
     Indication: Chronic obstructive pulmonary disease
     Dosage: 300MG EVERY 2 WEEKS
     Route: 058
     Dates: start: 20251015, end: 20251118
  2. DUPIXENT [Suspect]
     Active Substance: DUPILUMAB
     Indication: Asthma

REACTIONS (9)
  - Therapy change [None]
  - Pain in extremity [None]
  - Pain in extremity [None]
  - Pain [None]
  - Weight increased [None]
  - Swelling face [None]
  - Arthralgia [None]
  - Movement disorder [None]
  - Therapy cessation [None]

NARRATIVE: CASE EVENT DATE: 20251015
